FAERS Safety Report 14653303 (Version 3)
Quarter: 2018Q3

REPORT INFORMATION
  Report Type: Spontaneous
  Country: CN (occurrence: CN)
  Receive Date: 20180319
  Receipt Date: 20180726
  Transmission Date: 20181010
  Serious: Yes (Other)
  Sender: FDA-Public Use
  Company Number: CN-MERCK KGAA-2044036

PATIENT
  Age: 38 Year
  Sex: Female

DRUGS (1)
  1. NOVOTHYROX [Suspect]
     Active Substance: LEVOTHYROXINE SODIUM
     Indication: HYPOTHYROIDISM
     Route: 048
     Dates: start: 2011

REACTIONS (17)
  - Toxicity to various agents [None]
  - Somnolence [None]
  - Head discomfort [None]
  - Incorrect dose administered [None]
  - Aphasia [None]
  - Blood thyroid stimulating hormone increased [None]
  - Chest discomfort [None]
  - Unevaluable event [None]
  - Visual impairment [None]
  - Blindness transient [None]
  - Confusional state [None]
  - Headache [None]
  - Amnesia [None]
  - Lipids increased [None]
  - Product formulation issue [None]
  - Sedation [None]
  - Therapeutic response decreased [None]

NARRATIVE: CASE EVENT DATE: 201712
